FAERS Safety Report 5474411-X (Version None)
Quarter: 2007Q3

REPORT INFORMATION
  Report Type: 
  Country: None (occurrence: None)
  Receive Date: 20070928
  Receipt Date: 20061024
  Transmission Date: 20080115
  Serious: Yes (Hospitalization)
  Sender: FDA-Public Use
  Company Number: 000#5#2006-00430

PATIENT
  Age: 70 Year
  Sex: Female

DRUGS (21)
  1. ROTIGOTINE (DOSE UNKNOWN) PATCH (SILICONE) (ROTIGOTINE) [Suspect]
     Indication: PARKINSON'S DISEASE
     Dosage: 12 MG/24H (12 MG/24 H 1 IN 1 DAY(S))
     Route: 062
     Dates: start: 20050322
  2. ALENDRONATE SODIUM [Concomitant]
  3. ACETYLSALICYLIC ACID SRT [Concomitant]
  4. CALCIUM GLUBIONATE (CALCIUM GLUBIONATE) [Concomitant]
  5. CARBIDOPA, LEVODOPA (CARBIDOPA, LEVODOPA) [Concomitant]
  6. ACETAMINOPHEN [Concomitant]
  7. SELEGILINE HYDROCHLORIDE (SELEGILINE HYDROCHLORIDE) [Concomitant]
  8. CODEINE PHOSPHATE (CODEINE PHOSPHATE) [Concomitant]
  9. DOMPERIDONE (DOMPERIDONE) [Concomitant]
  10. AMITRIPTYLINE HCL [Concomitant]
  11. CODEINE PHOSPHATE, PARACETAMOL (CODEINE PHOSPHATE, PARACETAMOL) [Concomitant]
  12. CAPSAICIN (CAPSAICIN) [Concomitant]
  13. INFLUENZA VIRUS VACCINE POLYVALENT (INFLUENZA VIRUS VACCINE POLYVALENT [Concomitant]
  14. IBUPROFEN [Concomitant]
  15. TENOXICAM (TENOXICAM) [Concomitant]
  16. ENTACAPONE (ENTACAPONE) [Concomitant]
  17. ORPHENADRINE CITRATE [Concomitant]
  18. QUETIAPINE FUMARATE [Concomitant]
  19. ANAESTHETICS, LOCAL [Concomitant]
  20. ORPHENADRINE HYDROCHLORIDE (ORPHENADRINE HYDROCHLORIDE) [Concomitant]
  21. BLACK CURRANT EXTRACT [Concomitant]

REACTIONS (6)
  - CONFUSIONAL STATE [None]
  - DIZZINESS [None]
  - HALLUCINATION, VISUAL [None]
  - LOSS OF CONSCIOUSNESS [None]
  - SLEEP ATTACKS [None]
  - SOMNOLENCE [None]
